FAERS Safety Report 19113829 (Version 1)
Quarter: 2021Q2

REPORT INFORMATION
  Report Type: Spontaneous
  Country: US (occurrence: US)
  Receive Date: 20210409
  Receipt Date: 20210409
  Transmission Date: 20210717
  Serious: Yes (Other)
  Sender: FDA-Public Use
  Company Number: None

PATIENT
  Age: 39 Year
  Sex: Female

DRUGS (1)
  1. ASENAPINE. [Suspect]
     Active Substance: ASENAPINE
     Indication: BIPOLAR DISORDER
     Route: 060
     Dates: start: 20210101, end: 20210409

REACTIONS (4)
  - Product substitution issue [None]
  - Oral discomfort [None]
  - Oral mucosal erythema [None]
  - Mouth swelling [None]

NARRATIVE: CASE EVENT DATE: 20210101
